FAERS Safety Report 6691799-2 (Version None)
Quarter: 2010Q2

REPORT INFORMATION
  Report Type: 
  Country: None (occurrence: None)
  Receive Date: 20100422
  Receipt Date: 20090306
  Transmission Date: 20101027
  Serious: No
  Sender: FDA-Public Use
  Company Number: US-ASTRAZENECA-2009UW06092

PATIENT
  Sex: Female
  Weight: 68 kg

DRUGS (1)
  1. METOPROLOL TARTRATE [Suspect]
     Indication: POSTURAL ORTHOSTATIC TACHYCARDIA SYNDROME
     Dosage: 25 MG
     Route: 048

REACTIONS (1)
  - HYPERTENSION [None]
